FAERS Safety Report 16884893 (Version 1)
Quarter: 2019Q4

REPORT INFORMATION
  Report Type: Spontaneous
  Country: US (occurrence: US)
  Receive Date: 20190808
  Receipt Date: 20190808
  Transmission Date: 20200122
  Serious: Yes (Hospitalization)
  Sender: FDA-Public Use
  Company Number: None

PATIENT
  Sex: Female
  Weight: 59 kg

DRUGS (2)
  1. CYCLOPHOSPHAMIDE. [Suspect]
     Active Substance: CYCLOPHOSPHAMIDE
     Dates: end: 20190718
  2. DOXORUBICIN HYDROCHLORIDE. [Suspect]
     Active Substance: DOXORUBICIN HYDROCHLORIDE
     Dates: end: 20190718

REACTIONS (8)
  - Diarrhoea [None]
  - Hypotension [None]
  - Platelet count decreased [None]
  - Fatigue [None]
  - White blood cell count decreased [None]
  - Haemorrhoids [None]
  - Haemoglobin decreased [None]
  - Pyrexia [None]

NARRATIVE: CASE EVENT DATE: 20190726
